FAERS Safety Report 19620741 (Version 1)
Quarter: 2021Q3

REPORT INFORMATION
  Report Type: Spontaneous
  Country: US (occurrence: US)
  Receive Date: 20210728
  Receipt Date: 20210728
  Transmission Date: 20211014
  Serious: Yes (Death, Hospitalization)
  Sender: FDA-Public Use
  Company Number: None

PATIENT
  Age: 67 Year
  Sex: Female

DRUGS (12)
  1. POTASSIUM CHLORIDE. [Concomitant]
     Active Substance: POTASSIUM CHLORIDE
  2. SILDENAFIL. [Concomitant]
     Active Substance: SILDENAFIL
  3. VITAMIN D3 [Concomitant]
     Active Substance: CHOLECALCIFEROL
  4. MONTELUKAST [Concomitant]
     Active Substance: MONTELUKAST SODIUM
  5. AMBRISENTAN [Suspect]
     Active Substance: AMBRISENTAN
     Indication: PULMONARY HYPERTENSION
     Route: 048
     Dates: start: 20210513, end: 20210720
  6. ESCITALOPRAM [Concomitant]
     Active Substance: ESCITALOPRAM OXALATE
  7. ATORVASTATIN [Concomitant]
     Active Substance: ATORVASTATIN
  8. LORAZEPAM. [Concomitant]
     Active Substance: LORAZEPAM
  9. FUROSEMIDE. [Concomitant]
     Active Substance: FUROSEMIDE
  10. OXYCODONE [Concomitant]
     Active Substance: OXYCODONE
  11. ALBUTEROL. [Concomitant]
     Active Substance: ALBUTEROL
  12. ANORO ELLIPT [Concomitant]

REACTIONS (1)
  - Pulmonary arterial hypertension [None]

NARRATIVE: CASE EVENT DATE: 20210720
